FAERS Safety Report 12697680 (Version 4)
Quarter: 2017Q2

REPORT INFORMATION
  Report Type: Spontaneous
  Country: US (occurrence: US)
  Receive Date: 20160830
  Receipt Date: 20170512
  Transmission Date: 20170830
  Serious: Yes (Other)
  Sender: FDA-Public Use
  Company Number: US-WEST-WARD PHARMACEUTICALS CORP.-US-H14001-16-01647

PATIENT
  Age: 64 Year
  Sex: Female
  Weight: 65.77 kg

DRUGS (3)
  1. EXEMESTANE. [Suspect]
     Active Substance: EXEMESTANE
     Indication: BREAST CANCER
     Route: 048
  2. EXEMESTANE. [Suspect]
     Active Substance: EXEMESTANE
     Indication: BREAST CANCER
     Route: 048
     Dates: start: 20120423, end: 20160514
  3. COLECALCIFEROL [Concomitant]
     Active Substance: CHOLECALCIFEROL
     Indication: PRODUCT USED FOR UNKNOWN INDICATION
     Route: 048
     Dates: start: 201105

REACTIONS (27)
  - Hypertension [Recovering/Resolving]
  - Vision blurred [Not Recovered/Not Resolved]
  - Transient ischaemic attack [Unknown]
  - Brain stem infarction [Unknown]
  - Pain [Recovered/Resolved]
  - Paraesthesia [Unknown]
  - Insomnia [Unknown]
  - Cerebrovascular accident [Not Recovered/Not Resolved]
  - Deafness [Unknown]
  - Cataract [Unknown]
  - Myalgia [Unknown]
  - Nephrolithiasis [Unknown]
  - Dizziness [Unknown]
  - Photophobia [Unknown]
  - Blindness [Not Recovered/Not Resolved]
  - Diplopia [Not Recovered/Not Resolved]
  - Back pain [Recovering/Resolving]
  - Hypoaesthesia [Unknown]
  - Disturbance in attention [Unknown]
  - Depression [Recovered/Resolved]
  - Balance disorder [Recovered/Resolved]
  - Muscular weakness [Recovered/Resolved]
  - Nasal congestion [Unknown]
  - Cerebral atrophy [Not Recovered/Not Resolved]
  - Cerebral ischaemia [Not Recovered/Not Resolved]
  - Dry eye [Not Recovered/Not Resolved]
  - Eye pain [Unknown]

NARRATIVE: CASE EVENT DATE: 2016
